FAERS Safety Report 25776531 (Version 2)
Quarter: 2025Q3

REPORT INFORMATION
  Report Type: Spontaneous
  Country: US (occurrence: US)
  Receive Date: 20250909
  Receipt Date: 20250909
  Transmission Date: 20251020
  Serious: No
  Sender: DOMPE FARMACEUTICI
  Company Number: US-FARMAPROD-202502-0619

PATIENT
  Sex: Female

DRUGS (10)
  1. OXERVATE [Suspect]
     Active Substance: CENEGERMIN-BKBJ
     Indication: Neurotrophic keratopathy
     Route: 047
     Dates: start: 20241203, end: 20250128
  2. BIOTRUE HYDRATION BOOST [Concomitant]
     Active Substance: GLYCERIN
  3. ALENDRONATE SODIUM [Concomitant]
     Active Substance: ALENDRONATE SODIUM
  4. FENOFIBRATE [Concomitant]
     Active Substance: FENOFIBRATE
  5. AMLODIPINE BESYLATE [Concomitant]
     Active Substance: AMLODIPINE BESYLATE
  6. FAMOTIDINE [Concomitant]
     Active Substance: FAMOTIDINE
  7. IRBESARTAN [Concomitant]
     Active Substance: IRBESARTAN
  8. PRAVASTATIN SODIUM [Concomitant]
     Active Substance: PRAVASTATIN SODIUM
  9. ATENOLOL [Concomitant]
     Active Substance: ATENOLOL
  10. OFEV [Concomitant]
     Active Substance: NINTEDANIB

REACTIONS (2)
  - Diarrhoea [Unknown]
  - Cough [Unknown]
